FAERS Safety Report 9868482 (Version 1)
Quarter: 2014Q1

REPORT INFORMATION
  Report Type: Spontaneous
  Country: GB (occurrence: GB)
  Receive Date: 20140204
  Receipt Date: 20140204
  Transmission Date: 20141002
  Serious: Yes (Other)
  Sender: FDA-Public Use
  Company Number: GB-PFIZER INC-2014029216

PATIENT
  Sex: Female

DRUGS (1)
  1. CARDURA [Suspect]
     Dosage: 4 MG, UNK

REACTIONS (1)
  - Obesity [Unknown]
